FAERS Safety Report 9380100 (Version 1)
Quarter: 2013Q3

REPORT INFORMATION
  Report Type: Report from Study
  Country: CA (occurrence: CA)
  Receive Date: 20130702
  Receipt Date: 20130702
  Transmission Date: 20140515
  Serious: Yes (Other)
  Sender: FDA-Public Use
  Company Number: CA-JNJFOC-20130615776

PATIENT
  Age: 50 Year
  Sex: Male
  Weight: 68.8 kg

DRUGS (6)
  1. REMICADE [Suspect]
     Indication: CROHN^S DISEASE
     Dosage: LOADING DOSE
     Route: 042
     Dates: start: 20130517
  2. PANTOLOC [Concomitant]
     Route: 065
  3. RAMIPRIL [Concomitant]
     Route: 065
  4. BISOPROLOL [Concomitant]
     Route: 065
  5. METOCLOPRAMIDE [Concomitant]
     Dosage: DAY OF INFUSION ONLY
     Route: 065
  6. TYLENOL 3 [Concomitant]
     Dosage: DAY OF INFUSION ONLY
     Route: 065

REACTIONS (2)
  - Intestinal operation [Unknown]
  - Abdominal operation [Unknown]
